FAERS Safety Report 8384867-0 (Version None)
Quarter: 2012Q2

REPORT INFORMATION
  Report Type: 
  Country: None (occurrence: None)
  Receive Date: 20120524
  Receipt Date: 20120511
  Transmission Date: 20120825
  Serious: Yes (Other)
  Sender: FDA-Public Use
  Company Number: US-ELI_LILLY_AND_COMPANY-US201205004952

PATIENT
  Age: 85 Year
  Sex: Female

DRUGS (2)
  1. CYMBALTA [Suspect]
     Indication: DEPRESSION
     Dosage: 30 MG, UNK
     Dates: start: 20120301
  2. CYMBALTA [Suspect]
     Dosage: 60 MG, UNK

REACTIONS (2)
  - SKIN EXFOLIATION [None]
  - ERYTHEMA [None]
